FAERS Safety Report 17237058 (Version 3)
Quarter: 2020Q1

REPORT INFORMATION
  Report Type: Spontaneous
  Country: US (occurrence: US)
  Receive Date: 20200106
  Receipt Date: 20200206
  Transmission Date: 20200409
  Serious: No
  Sender: FDA-Public Use
  Company Number: US-PFIZER INC-2020002923

PATIENT
  Age: 69 Year
  Sex: Female

DRUGS (3)
  1. IBRANCE [Suspect]
     Active Substance: PALBOCICLIB
     Dosage: 125 MG, CYCLIC (1 QD FOR 21 DAYS ON, THEN 7 DAYS OFF OF 28-DAY CYCLE)
     Route: 048
     Dates: start: 20191207
  2. FASLODEX [Concomitant]
     Active Substance: FULVESTRANT
     Dosage: UNK
  3. IBRANCE [Suspect]
     Active Substance: PALBOCICLIB
     Indication: BREAST CANCER METASTATIC
     Dosage: 125 MG, CYCLIC (1 QD FOR 21 DAYS ON, THEN 7 DAYS OFF OF 28-DAY CYCLE)
     Route: 048
     Dates: start: 20191119

REACTIONS (3)
  - Dizziness [Recovered/Resolved]
  - Oral pain [Unknown]
  - Joint stiffness [Unknown]

NARRATIVE: CASE EVENT DATE: 20200102
